FAERS Safety Report 24550096 (Version 1)
Quarter: 2024Q4

REPORT INFORMATION
  Report Type: Spontaneous
  Country: GB (occurrence: GB)
  Receive Date: 20241025
  Receipt Date: 20241025
  Transmission Date: 20250115
  Serious: Yes (Other)
  Sender: TEVA
  Company Number: GB-MHRA-TPP37998339C5821140YC1729096238078

PATIENT
  Age: 95 Year
  Sex: Female
  Weight: 69 kg

DRUGS (31)
  1. AMLODIPINE [Suspect]
     Active Substance: AMLODIPINE BESYLATE
     Indication: Product used for unknown indication
     Route: 065
     Dates: start: 20140404
  2. LANSOPRAZOLE [Concomitant]
     Active Substance: LANSOPRAZOLE
     Indication: Product used for unknown indication
     Dosage: TAKE ONE ONCE DAILY FOR STOMACH ACID
     Dates: start: 20100115, end: 20241010
  3. PROMETHAZINE TEOCLATE [Concomitant]
     Active Substance: PROMETHAZINE TEOCLATE
     Indication: Product used for unknown indication
     Dosage: 1 AT NIGHT
     Dates: start: 20240919, end: 20240920
  4. INVITA [Concomitant]
     Indication: Product used for unknown indication
     Dosage: TAKE ONE DAILY (AS PER D/S 12/06/2024)
     Route: 065
     Dates: start: 20240618, end: 20241010
  5. ZEROCREAM [Concomitant]
     Indication: Product used for unknown indication
     Dosage: AS DIRECTED
     Route: 065
     Dates: start: 20220307, end: 20241010
  6. DOXYCYCLINE [Concomitant]
     Active Substance: DOXYCYCLINE
     Indication: Product used for unknown indication
     Dosage: TWO TO BE TAKEN ON THE FIRST DAY THEN ONE TO BE TAKEN EACH DAY
     Route: 065
     Dates: start: 20240917, end: 20240918
  7. BETAHISTINE [Concomitant]
     Active Substance: BETAHISTINE
     Indication: Product used for unknown indication
     Dosage: TIME INTERVAL: 0.33333333 DAYS: TAKE ONE 3 TIMES/DAY
     Route: 065
     Dates: start: 20080828, end: 20241010
  8. BETAMETHASONE VALERATE [Concomitant]
     Active Substance: BETAMETHASONE VALERATE
     Indication: Product used for unknown indication
     Dosage: APPLY TO THE AFFECTED AREAS TWICE DAILY R LOWER...
     Route: 065
     Dates: start: 20240912, end: 20241010
  9. BECLOMETHASONE DIPROPIONATE [Concomitant]
     Active Substance: BECLOMETHASONE DIPROPIONATE
     Indication: Product used for unknown indication
     Dosage: INHALE 2 DOSES TWICE DAILY
     Route: 055
     Dates: start: 20080828, end: 20241010
  10. FLUCLOXACILLIN [Concomitant]
     Active Substance: FLUCLOXACILLIN
     Indication: Product used for unknown indication
     Dosage: ONE TO BE TAKEN FOUR TIMES A DAY
     Dates: start: 20241008, end: 20241009
  11. PROCHLORPERAZINE [Concomitant]
     Active Substance: PROCHLORPERAZINE
     Indication: Product used for unknown indication
     Dosage: TIME INTERVAL: 0.33333333 DAYS: ONE THREE TIMES A DAY FOR DIZZINESS, 15.304 YEARS:
     Dates: start: 20090626, end: 20241010
  12. VITAMIN B COMPLEX NOS [Concomitant]
     Active Substance: CYANOCOBALAMIN\PYRIDOXINE HYDROCHLORIDE\RIBOFLAVIN\SODIUM PANTOTHENATE\THIAMINE HYDROCHLORIDE\VITAMI
     Indication: Product used for unknown indication
     Dosage: ONE TO BE TAKEN EACH DAY, DURATION: 2 DAYS
     Route: 065
     Dates: start: 20240926, end: 20240927
  13. ALLOPURINOL [Concomitant]
     Active Substance: ALLOPURINOL
     Indication: Product used for unknown indication
     Dosage: 1 TABLET ONCE A DAY TO PREVENT GOUT
     Dates: start: 20200921, end: 20241010
  14. ALBUTEROL [Concomitant]
     Active Substance: ALBUTEROL
     Indication: Product used for unknown indication
     Dosage: 2 PUFFS AS REQUIRED, MAXIMUM 4 HOURLY, 4.058 YEARS
     Route: 065
     Dates: start: 20200921, end: 20241010
  15. ADCAL [Concomitant]
     Indication: Product used for unknown indication
     Dosage: TAKE ONE TWICE DAILY FOR BONES,14.638 YEARS: DURATION
     Route: 065
     Dates: start: 20100224, end: 20241010
  16. BUTRANS [Concomitant]
     Active Substance: BUPRENORPHINE
     Indication: Product used for unknown indication
     Dosage: APPLY ONE PATCH EACH WEEK AS DIRECTED. REMOVE O..., 66 DAYS DURATION
     Route: 065
     Dates: start: 20240806, end: 20241010
  17. BUPRENORPHINE [Concomitant]
     Active Substance: BUPRENORPHINE
     Indication: Product used for unknown indication
     Dosage: APPLY ONE PATCH EACH WEEK AS DIRECTED. REMOVE O..., DURATION?181 DAYS
     Dates: start: 20240208, end: 20240806
  18. FUROSEMIDE [Concomitant]
     Active Substance: FUROSEMIDE
     Indication: Product used for unknown indication
     Dosage: TAKE ONE IN THE MORNING (AS PER DISCHARGE SUMMA...
     Dates: start: 20200921, end: 20241010
  19. IBUPROFEN [Concomitant]
     Active Substance: IBUPROFEN
     Indication: Product used for unknown indication
     Dosage: TIME INTERVAL: 0.33333333 DAYS: APPLY 3 TIMES/DAY
     Dates: start: 20081118, end: 20241010
  20. DOCUSATE SODIUM [Concomitant]
     Active Substance: DOCUSATE SODIUM
     Indication: Product used for unknown indication
     Dosage: TAKE ONE WHEN REQUIRED FOR CONSTIPATION
     Route: 065
     Dates: start: 20200518, end: 20241010
  21. PROCHLORPERAZINE [Concomitant]
     Active Substance: PROCHLORPERAZINE
     Indication: Product used for unknown indication
     Dosage: TAKE ONE 3 TIMES/DAY, DURATION:16.132 YEARS:
     Route: 065
     Dates: start: 20080828, end: 20241010
  22. BISOPROLOL [Concomitant]
     Active Substance: BISOPROLOL\BISOPROLOL FUMARATE
     Indication: Product used for unknown indication
     Dosage: 1 TABLET ONCE DAILY
     Dates: start: 20200702, end: 20241010
  23. MORPHINE SULFATE [Concomitant]
     Active Substance: MORPHINE SULFATE
     Indication: Product used for unknown indication
     Dosage: 5ML TWICE DAILY FOR PAIN
     Route: 065
     Dates: start: 20211130, end: 20240723
  24. ASCORBIC ACID [Concomitant]
     Active Substance: ASCORBIC ACID
     Indication: Product used for unknown indication
     Dosage: 1 TWICE A DAY
     Route: 065
     Dates: start: 20241003, end: 20241010
  25. ACETAMINOPHEN [Concomitant]
     Active Substance: ACETAMINOPHEN
     Indication: Product used for unknown indication
     Dosage: TAKE TWO 4 TIMES/DAY
     Route: 065
     Dates: start: 20090626, end: 20241010
  26. BISACODYL [Concomitant]
     Active Substance: BISACODYL
     Indication: Product used for unknown indication
     Dosage: 1 TABLET DAILY BEFORE BEDTIME
     Dates: start: 20200518, end: 20241010
  27. APIXABAN [Concomitant]
     Active Substance: APIXABAN
     Indication: Product used for unknown indication
     Dosage: ONE TO BE TAKEN TWICE A DAY (AS PER GP - DOSE R...
     Route: 065
     Dates: start: 20230818, end: 20241010
  28. CALCIUM CARBONATE [Concomitant]
     Active Substance: CALCIUM CARBONATE
     Indication: Product used for unknown indication
     Dosage: TAKE ONE TWICE DAILY
     Route: 065
     Dates: start: 20090203, end: 20241010
  29. COCODAMOL [Concomitant]
     Active Substance: ACETAMINOPHEN\CODEINE PHOSPHATE
     Indication: Product used for unknown indication
     Dosage: ONE TO BE TAKEN FOUR TIMES A DAY WHEN REQUIRED (NOT WITH PARACETAMOL)
     Route: 065
     Dates: start: 20241008, end: 20241009
  30. ALBUTEROL [Concomitant]
     Active Substance: ALBUTEROL
     Indication: Product used for unknown indication
     Dosage: 2 PUFFS AS REQUIRED, MAXIMUM 4 HOURLY
     Route: 065
     Dates: start: 20080828, end: 20241010
  31. FOLIC ACID [Concomitant]
     Active Substance: FOLIC ACID
     Indication: Product used for unknown indication
     Dosage: ONE TO BE TAKEN EACH DAY (AS PER D/S 12/06/2024)
     Dates: start: 20240618, end: 20241004

REACTIONS (1)
  - Joint swelling [Recovered/Resolved]

NARRATIVE: CASE EVENT DATE: 20140414
